FAERS Safety Report 22364636 (Version 1)
Quarter: 2023Q2

REPORT INFORMATION
  Report Type: Spontaneous
  Country: CZ (occurrence: CZ)
  Receive Date: 20230525
  Receipt Date: 20230525
  Transmission Date: 20230722
  Serious: Yes (Other)
  Sender: FDA-Public Use
  Company Number: CZ-SUN PHARMACEUTICAL INDUSTRIES LTD-2023RR-390091

PATIENT
  Age: 27 Year
  Sex: Male

DRUGS (6)
  1. METHOTREXATE [Suspect]
     Active Substance: METHOTREXATE
     Indication: Acute lymphocytic leukaemia
     Dosage: UNK
     Route: 065
     Dates: start: 202003, end: 202108
  2. DOXORUBICIN [Suspect]
     Active Substance: DOXORUBICIN
     Indication: Acute lymphocytic leukaemia recurrent
     Dosage: 50 MILLIGRAM/SQ. METER ON DAY 4
     Route: 065
  3. VINCRISTINE [Suspect]
     Active Substance: VINCRISTINE
     Indication: Acute lymphocytic leukaemia recurrent
     Dosage: 2 MILLIGRAM, ON DAYS 4 AND 11
     Route: 065
  4. DEXAMETHASONE [Suspect]
     Active Substance: DEXAMETHASONE
     Indication: Acute lymphocytic leukaemia recurrent
     Dosage: 40 MILLIGRAM ON DAYS 1-4 AND 11-14
     Route: 065
  5. MERCAPTOPURINE [Suspect]
     Active Substance: MERCAPTOPURINE
     Indication: Acute lymphocytic leukaemia
     Dosage: UNK
     Route: 065
     Dates: start: 202003, end: 202108
  6. CYCLOPHOSPHAMIDE [Suspect]
     Active Substance: CYCLOPHOSPHAMIDE
     Indication: Acute lymphocytic leukaemia recurrent
     Dosage: 300 MILLIGRAM/SQ. METER, BID ON DAYS 1-3
     Route: 065

REACTIONS (5)
  - Hepatotoxicity [Unknown]
  - Myelosuppression [Unknown]
  - Therapeutic product effect incomplete [Unknown]
  - Transaminases increased [Recovered/Resolved]
  - Drug intolerance [Recovered/Resolved]
